FAERS Safety Report 7067500-X (Version None)
Quarter: 2010Q4

REPORT INFORMATION
  Report Type: 
  Country: None (occurrence: None)
  Receive Date: 20101028
  Receipt Date: 20101019
  Transmission Date: 20110411
  Serious: Yes (Hospitalization)
  Sender: FDA-Public Use
  Company Number: US-JNJFOC-20101006261

PATIENT
  Sex: Male
  Weight: 89.81 kg

DRUGS (12)
  1. FENTANYL CITRATE [Suspect]
     Indication: NEUROPATHY PERIPHERAL
     Route: 062
  2. FENTANYL CITRATE [Suspect]
     Route: 062
  3. NORFLEX [Interacting]
     Indication: BACK PAIN
     Route: 065
  4. NUBAIN [Interacting]
     Indication: BACK PAIN
     Route: 065
  5. RISPERDAL [Concomitant]
     Indication: PRODUCT USED FOR UNKNOWN INDICATION
     Route: 048
  6. NORVASC [Concomitant]
     Indication: PRODUCT USED FOR UNKNOWN INDICATION
     Route: 048
  7. UNKNOWN MEDICATION [Concomitant]
     Indication: PRODUCT USED FOR UNKNOWN INDICATION
     Route: 048
  8. NEURONTIN [Concomitant]
     Indication: PRODUCT USED FOR UNKNOWN INDICATION
     Route: 048
  9. ALBUTEROL [Concomitant]
     Indication: PRODUCT USED FOR UNKNOWN INDICATION
     Dosage: 2 PUFFS PER DAY
     Route: 055
  10. HUMALOG [Concomitant]
     Indication: DIABETES MELLITUS
     Dosage: 15 UNITS/SOLUTION/75/25/ONCE PER DAY
     Route: 058
  11. SYMBICORT [Concomitant]
     Indication: PRODUCT USED FOR UNKNOWN INDICATION
     Dosage: 2 PUFFS PER DAY
     Route: 055
  12. NITROGLYCERIN [Concomitant]
     Indication: PRODUCT USED FOR UNKNOWN INDICATION
     Dosage: AS NEEDED
     Route: 065

REACTIONS (11)
  - BACK PAIN [None]
  - BLOOD TESTOSTERONE DECREASED [None]
  - COLLAPSE OF LUNG [None]
  - COMA [None]
  - DRUG INTERACTION [None]
  - DYSKINESIA [None]
  - FEELING ABNORMAL [None]
  - HOT FLUSH [None]
  - HYPERHIDROSIS [None]
  - PRODUCT ADHESION ISSUE [None]
  - WRONG TECHNIQUE IN DRUG USAGE PROCESS [None]
